FAERS Safety Report 14418700 (Version 1)
Quarter: 2018Q1

REPORT INFORMATION
  Report Type: Spontaneous
  Country: US (occurrence: US)
  Receive Date: 20180122
  Receipt Date: 20180122
  Transmission Date: 20180509
  Serious: No
  Sender: FDA-Public Use
  Company Number: US-TEVA-730993USA

PATIENT
  Sex: Female
  Weight: 73 kg

DRUGS (4)
  1. CITALOPRAM [Concomitant]
     Active Substance: CITALOPRAM HYDROBROMIDE
  2. TIZANOIDINE [Concomitant]
  3. XANAX [Concomitant]
     Active Substance: ALPRAZOLAM
  4. TRAZODONE [Suspect]
     Active Substance: TRAZODONE HYDROCHLORIDE
     Indication: DEPRESSION
     Route: 065

REACTIONS (7)
  - Constipation [Unknown]
  - Insomnia [Unknown]
  - Hypersomnia [Unknown]
  - Hallucination [Unknown]
  - Feeling abnormal [Unknown]
  - Dizziness [Unknown]
  - Tachyphrenia [Unknown]
